FAERS Safety Report 6126655-1 (Version None)
Quarter: 2009Q1

REPORT INFORMATION
  Report Type: 
  Country: None (occurrence: None)
  Receive Date: 20090320
  Receipt Date: 20090305
  Transmission Date: 20090719
  Serious: Yes (Hospitalization)
  Sender: FDA-Public Use
  Company Number: FR-PFIZER INC-2009180865

PATIENT

DRUGS (6)
  1. AMLOR [Suspect]
     Indication: HYPERTENSION
     Route: 048
  2. DETENSIEL [Suspect]
     Indication: HYPERTENSION
     Route: 048
  3. FOZITEC [Suspect]
     Indication: HYPERTENSION
     Route: 048
  4. VASTAREL [Suspect]
     Indication: ANGINA PECTORIS
     Route: 048
  5. MOPRAL [Suspect]
     Indication: OESOPHAGITIS ULCERATIVE
     Route: 048
  6. CLONIDINE HCL [Suspect]
     Indication: HYPERTENSION
     Route: 048

REACTIONS (1)
  - ANAEMIA [None]
